FAERS Safety Report 6813986-2 (Version None)
Quarter: 2010Q3

REPORT INFORMATION
  Report Type: 
  Country: None (occurrence: None)
  Receive Date: 20100702
  Receipt Date: 20100217
  Transmission Date: 20110219
  Serious: Yes (Hospitalization, Other)
  Sender: FDA-Public Use
  Company Number: US-ASTRAZENECA-2008UW02097

PATIENT
  Age: 36 Year
  Sex: Female
  Weight: 77.1 kg

DRUGS (21)
  1. SEROQUEL [Suspect]
     Indication: MAJOR DEPRESSION
     Dosage: STARTED AT 25 MG DAILY, CURRENTLY AT 700 MG DAILY
     Route: 048
     Dates: start: 20020101
  2. SEROQUEL [Suspect]
     Indication: BIPOLAR DISORDER
     Dosage: STARTED AT 25 MG DAILY, CURRENTLY AT 700 MG DAILY
     Route: 048
     Dates: start: 20020101
  3. SEROQUEL [Suspect]
     Indication: BORDERLINE PERSONALITY DISORDER
     Dosage: STARTED AT 25 MG DAILY, CURRENTLY AT 700 MG DAILY
     Route: 048
     Dates: start: 20020101
  4. SEROQUEL [Suspect]
     Indication: POST-TRAUMATIC STRESS DISORDER
     Dosage: STARTED AT 25 MG DAILY, CURRENTLY AT 700 MG DAILY
     Route: 048
     Dates: start: 20020101
  5. SEROQUEL [Suspect]
     Dosage: 100 MG TO 200 MG
     Route: 048
     Dates: start: 20020125
  6. SEROQUEL [Suspect]
     Dosage: 100 MG TO 200 MG
     Route: 048
     Dates: start: 20020125
  7. SEROQUEL [Suspect]
     Dosage: 100 MG TO 200 MG
     Route: 048
     Dates: start: 20020125
  8. SEROQUEL [Suspect]
     Dosage: 100 MG TO 200 MG
     Route: 048
     Dates: start: 20020125
  9. ZYPREXA [Concomitant]
  10. TRAZODONE HCL [Concomitant]
     Dates: start: 20030101
  11. TRAZODONE HCL [Concomitant]
     Dates: start: 20040224
  12. TOPAMAX [Concomitant]
     Dates: start: 20050101
  13. LEXAPRO [Concomitant]
     Dates: start: 20070101
  14. LEXAPRO [Concomitant]
     Dates: start: 20070101
  15. PREVACID [Concomitant]
     Dates: start: 20020125
  16. EFFEXOR XR [Concomitant]
     Dates: start: 20020125
  17. GLUCOTROL [Concomitant]
     Dates: start: 20020125
  18. PRAXIN [Concomitant]
     Dates: start: 20100125
  19. HYZAAR [Concomitant]
     Indication: HYPERTENSION
     Dosage: 50/12.5 MG ONE TABLET AT NIGHT
     Dates: start: 20020625
  20. GABITRIL [Concomitant]
     Dates: start: 20020625
  21. NEURONTIN [Concomitant]
     Dates: start: 20020625

REACTIONS (9)
  - BIPOLAR DISORDER [None]
  - BLOOD CHOLESTEROL INCREASED [None]
  - DEPRESSION [None]
  - DIABETES MELLITUS [None]
  - DIABETIC COMA [None]
  - HYPERLIPIDAEMIA [None]
  - HYPOTHYROIDISM [None]
  - OBESITY [None]
  - TYPE 2 DIABETES MELLITUS [None]
